FAERS Safety Report 5918298-7 (Version None)
Quarter: 2008Q4

REPORT INFORMATION
  Report Type: 
  Country: None (occurrence: None)
  Receive Date: 20081010
  Receipt Date: 20080925
  Transmission Date: 20090506
  Serious: No
  Sender: FDA-Public Use
  Company Number: 2008S1017692

PATIENT
  Age: 17 Year
  Sex: Female

DRUGS (2)
  1. AMNESTEEM [Suspect]
  2. SOTRET [Suspect]

REACTIONS (1)
  - DEPRESSION [None]
